FAERS Safety Report 7579835-2 (Version None)
Quarter: 2011Q2

REPORT INFORMATION
  Report Type: 
  Country: None (occurrence: None)
  Receive Date: 20110622
  Receipt Date: 20110613
  Transmission Date: 20111010
  Serious: Yes (Other)
  Sender: FDA-Public Use
  Company Number: 2011SP027450

PATIENT
  Sex: Female

DRUGS (2)
  1. NASONEX [Suspect]
     Indication: PRODUCT USED FOR UNKNOWN INDICATION
  2. THYROID MEDICATION [Concomitant]

REACTIONS (1)
  - THYROID FUNCTION TEST ABNORMAL [None]
